FAERS Safety Report 13530002 (Version 1)
Quarter: 2017Q2

REPORT INFORMATION
  Report Type: Spontaneous
  Country: HR (occurrence: HR)
  Receive Date: 20170509
  Receipt Date: 20170509
  Transmission Date: 20170830
  Serious: Yes (Other)
  Sender: FDA-Public Use
  Company Number: HR-MYLANLABS-2017M1027826

PATIENT

DRUGS (2)
  1. HELEX [Suspect]
     Active Substance: ALPRAZOLAM
     Route: 048
     Dates: start: 20170328, end: 20170328
  2. FEVARIN [Suspect]
     Active Substance: FLUVOXAMINE MALEATE
     Route: 048
     Dates: start: 20170328, end: 20170328

REACTIONS (4)
  - Loss of consciousness [Unknown]
  - Intentional overdose [Unknown]
  - Suicide attempt [Unknown]
  - Muscle rigidity [Unknown]

NARRATIVE: CASE EVENT DATE: 20170328
